FAERS Safety Report 5588549-X (Version None)
Quarter: 2007Q4

REPORT INFORMATION
  Report Type: 
  Country: None (occurrence: None)
  Receive Date: 20071212
  Receipt Date: 20070824
  Transmission Date: 20080405
  Serious: No
  Sender: FDA-Public Use
  Company Number: 2007RL000380

PATIENT
  Age: 56 Year
  Sex: Male
  Weight: 117.9352 kg

DRUGS (1)
  1. LOVAZA [Suspect]
     Indication: BLOOD TRIGLYCERIDES INCREASED
     Dosage: 4 GM;QD;PO
     Route: 048
     Dates: start: 20070815

REACTIONS (2)
  - HYPERHIDROSIS [None]
  - SKIN ODOUR ABNORMAL [None]
